FAERS Safety Report 23568890 (Version 1)
Quarter: 2024Q1

REPORT INFORMATION
  Report Type: Report from Study
  Country: US (occurrence: US)
  Receive Date: 20240227
  Receipt Date: 20240227
  Transmission Date: 20240409
  Serious: No
  Sender: FDA-Public Use
  Company Number: US-ORG100014127-2023000279

PATIENT
  Age: 59 Year
  Sex: Male

DRUGS (2)
  1. METOPIRONE [Suspect]
     Active Substance: METYRAPONE
     Indication: Pituitary-dependent Cushing^s syndrome
     Dosage: 250 MG: TAKE 2 CAPSULES AS DIRECTED THREE TIMES DAILY
     Dates: start: 20200510, end: 2023
  2. Lysodren tablet 500 mg [Concomitant]
     Indication: Product used for unknown indication
     Route: 048

REACTIONS (1)
  - Off label use [Recovered/Resolved]

NARRATIVE: CASE EVENT DATE: 20201005
